FAERS Safety Report 4587209-1 (Version None)
Quarter: 2005Q1

REPORT INFORMATION
  Report Type: 
  Country: None (occurrence: None)
  Receive Date: 20050218
  Receipt Date: 20050128
  Transmission Date: 20050727
  Serious: Yes (Other)
  Sender: FDA-Public Use
  Company Number: US-GLAXOSMITHKLINE-A0542867A

PATIENT
  Age: 8 Year
  Sex: Female
  Weight: 31.4 kg

DRUGS (3)
  1. ADVAIR DISKUS 100/50 [Suspect]
     Indication: ASTHMA
     Dosage: 1PUFF TWICE PER DAY
     Route: 055
     Dates: start: 20050127
  2. TYLENOL (CAPLET) [Concomitant]
  3. CLARITIN [Concomitant]

REACTIONS (1)
  - PHARYNGITIS STREPTOCOCCAL [None]
